FAERS Safety Report 8238229-7 (Version None)
Quarter: 2012Q1

REPORT INFORMATION
  Report Type: 
  Country: None (occurrence: None)
  Receive Date: 20120327
  Receipt Date: 20120321
  Transmission Date: 20120608
  Serious: Yes (Other)
  Sender: FDA-Public Use
  Company Number: PHHY2012CA014692

PATIENT
  Sex: Male

DRUGS (1)
  1. CLOZARIL [Suspect]
     Dates: start: 20091222, end: 20120216

REACTIONS (4)
  - RENAL FAILURE [None]
  - HEPATIC FAILURE [None]
  - MALAISE [None]
  - DYSPEPSIA [None]
